FAERS Safety Report 10365518 (Version 2)
Quarter: 2014Q4

REPORT INFORMATION
  Report Type: Report from Study
  Country: US (occurrence: US)
  Receive Date: 20140806
  Receipt Date: 20141013
  Transmission Date: 20150528
  Serious: Yes (Hospitalization)
  Sender: FDA-Public Use
  Company Number: US-SA-2014SA102269

PATIENT
  Age: 55 Year
  Sex: Male

DRUGS (3)
  1. HUMALOG [Suspect]
     Active Substance: INSULIN LISPRO
     Indication: PRODUCT USED FOR UNKNOWN INDICATION
     Route: 065
  2. LANTUS SOLOSTAR [Suspect]
     Active Substance: INSULIN GLARGINE
     Indication: TYPE 1 DIABETES MELLITUS
     Dosage: DOSE:40 UNIT(S)
     Route: 065
     Dates: start: 2007
  3. SOLOSTAR [Concomitant]
     Active Substance: DEVICE
     Indication: TYPE 1 DIABETES MELLITUS
     Dates: start: 2007

REACTIONS (9)
  - Cerebrovascular accident [Unknown]
  - Altered state of consciousness [Unknown]
  - Myocardial infarction [Unknown]
  - Memory impairment [Not Recovered/Not Resolved]
  - Blood glucose increased [Not Recovered/Not Resolved]
  - Blindness [Not Recovered/Not Resolved]
  - Malaise [Not Recovered/Not Resolved]
  - Transient ischaemic attack [Unknown]
  - Drug administration error [Unknown]

NARRATIVE: CASE EVENT DATE: 2013
